FAERS Safety Report 7618291-2 (Version None)
Quarter: 2011Q3

REPORT INFORMATION
  Report Type: 
  Country: None (occurrence: None)
  Receive Date: 20110718
  Receipt Date: 20110705
  Transmission Date: 20111222
  Serious: Yes (Hospitalization)
  Sender: FDA-Public Use
  Company Number: AU-ROCHE-775429

PATIENT
  Sex: Female

DRUGS (7)
  1. CHLORAMPHENICOL [Concomitant]
  2. RIBAVIRIN [Suspect]
     Route: 048
     Dates: start: 20101029, end: 20110415
  3. BLINDED BMS-790052 (HCV NS5A INHIBITOR) [Suspect]
     Route: 048
     Dates: start: 20101029, end: 20110415
  4. TEMAZEPAM [Concomitant]
     Dates: start: 20110318, end: 20110428
  5. ACETAMINOPHEN [Concomitant]
     Dates: start: 20110417, end: 20110418
  6. KEFLEX [Concomitant]
  7. PEGINTERFERON ALFA-2A [Suspect]
     Route: 058
     Dates: start: 20101029, end: 20110408

REACTIONS (2)
  - CHEST PAIN [None]
  - SYNCOPE [None]
